FAERS Safety Report 20291099 (Version 1)
Quarter: 2022Q1

REPORT INFORMATION
  Report Type: Spontaneous
  Country: US (occurrence: None)
  Receive Date: 20220103
  Receipt Date: 20220103
  Transmission Date: 20220423
  Serious: Yes (Death)
  Sender: FDA-Public Use
  Company Number: None

PATIENT
  Age: 63 Year
  Sex: Female

DRUGS (9)
  1. GLATIRAMER [Suspect]
     Active Substance: GLATIRAMER
     Indication: Multiple sclerosis
     Dosage: FREQUENCY : 3 TIMES A WEEK;?
     Route: 058
     Dates: start: 20190328, end: 20211216
  2. CALCIUM [Concomitant]
     Active Substance: CALCIUM
  3. GLUCOSAMINE [Concomitant]
     Active Substance: GLUCOSAMINE
  4. LISINOPRIL [Concomitant]
     Active Substance: LISINOPRIL
  5. LOMOTIL [Concomitant]
     Active Substance: ATROPINE SULFATE\DIPHENOXYLATE HYDROCHLORIDE
  6. MULTI VITAMI [Concomitant]
  7. PROLIA [Concomitant]
     Active Substance: DENOSUMAB
  8. VITAMIN C [Concomitant]
     Active Substance: ASCORBIC ACID
  9. VITAMIN E [Concomitant]
     Active Substance: .ALPHA.-TOCOPHEROL

REACTIONS (1)
  - Death [None]

NARRATIVE: CASE EVENT DATE: 20211216
